FAERS Safety Report 10231806 (Version 1)
Quarter: 2014Q2

REPORT INFORMATION
  Report Type: Spontaneous
  Country: US (occurrence: US)
  Receive Date: 20140612
  Receipt Date: 20140612
  Transmission Date: 20141212
  Serious: Yes (Other)
  Sender: FDA-Public Use
  Company Number: US-AMGEN INC.-USASP2014043366

PATIENT
  Age: 60 Year
  Sex: Female
  Weight: 99.77 kg

DRUGS (11)
  1. ENBREL [Suspect]
     Indication: PRODUCT USED FOR UNKNOWN INDICATION
     Dosage: 50 MG, QWK
     Route: 058
  2. NORVASC [Concomitant]
     Dosage: 10 MG, UNK
     Route: 065
  3. LISINOPRIL [Concomitant]
     Dosage: 10 MG, UNK
     Route: 065
  4. SALSALATE [Concomitant]
     Dosage: 500 MG, UNK
     Route: 065
  5. SULFASALAZINE [Concomitant]
     Dosage: 500 MG, UNK
     Route: 065
  6. IRON [Concomitant]
     Dosage: 18 MG, UNK
     Route: 065
  7. CALCIUM [Concomitant]
     Dosage: 500 UNK, UNK
     Route: 065
  8. ZINC [Concomitant]
     Dosage: 30 MG, UNK
     Route: 065
  9. METHOTREXATE [Concomitant]
     Dosage: 1 G, UNK
     Route: 065
  10. LEUCOVORIN CALCIUM [Concomitant]
     Dosage: 200 MG, UNK
     Route: 065
  11. VITAMIN D                          /00107901/ [Concomitant]
     Dosage: 400 UNIT, UNK
     Route: 065

REACTIONS (1)
  - Knee arthroplasty [Unknown]
